FAERS Safety Report 25963753 (Version 1)
Quarter: 2025Q4

REPORT INFORMATION
  Report Type: Spontaneous
  Country: US (occurrence: None)
  Receive Date: 20251027
  Receipt Date: 20251027
  Transmission Date: 20260117
  Serious: Yes (Hospitalization)
  Sender: FDA-CTU
  Company Number: None

PATIENT
  Age: 41 Year
  Sex: Female

DRUGS (1)
  1. COSENTYX [Suspect]
     Active Substance: SECUKINUMAB
     Indication: Hidradenitis
     Dosage: OTHER FREQUENCY : MONTHLY;?
     Route: 058
     Dates: start: 20250214

REACTIONS (2)
  - Hidradenitis [None]
  - Condition aggravated [None]

NARRATIVE: CASE EVENT DATE: 20250909
